FAERS Safety Report 22388372 (Version 1)
Quarter: 2023Q2

REPORT INFORMATION
  Report Type: Spontaneous
  Country: US (occurrence: US)
  Receive Date: 20230531
  Receipt Date: 20230531
  Transmission Date: 20230721
  Serious: No
  Sender: FDA-Public Use
  Company Number: US-EPICPHARMA-US-2023EPCSPO00913

PATIENT
  Sex: Female

DRUGS (7)
  1. RIFAMPIN [Suspect]
     Active Substance: RIFAMPIN
     Indication: Mycobacterial infection
     Route: 065
  2. ETHAMBUTOL HYDROCHLORIDE [Suspect]
     Active Substance: ETHAMBUTOL HYDROCHLORIDE
     Indication: Mycobacterial infection
     Route: 065
  3. AZITHROMYCIN [Suspect]
     Active Substance: AZITHROMYCIN
     Indication: Mycobacterial infection
     Route: 065
  4. AMIKACIN [Concomitant]
     Active Substance: AMIKACIN
     Route: 042
  5. IMIPENEM [Concomitant]
     Active Substance: IMIPENEM
     Route: 042
  6. OMADACYCLINE [Concomitant]
     Active Substance: OMADACYCLINE
     Route: 048
  7. OMADACYCLINE [Concomitant]
     Active Substance: OMADACYCLINE
     Route: 048

REACTIONS (1)
  - Drug ineffective for unapproved indication [Unknown]
